FAERS Safety Report 9607493 (Version 3)
Quarter: 2013Q4

REPORT INFORMATION
  Report Type: Spontaneous
  Country: JP (occurrence: JP)
  Receive Date: 20131009
  Receipt Date: 20131028
  Transmission Date: 20140711
  Serious: Yes (Death)
  Sender: FDA-Public Use
  Company Number: JP-JNJFOC-20131001750

PATIENT
  Age: 84 Year
  Sex: Male

DRUGS (13)
  1. SIMPONI [Suspect]
     Indication: RHEUMATOID ARTHRITIS
     Route: 058
     Dates: start: 20130802, end: 20130828
  2. RHEUMATREX [Suspect]
     Indication: RHEUMATOID ARTHRITIS
     Route: 048
     Dates: start: 20130213, end: 20130913
  3. PREDONINE [Suspect]
     Indication: RHEUMATOID ARTHRITIS
     Route: 048
     Dates: start: 200707, end: 20130913
  4. RIMATIL [Concomitant]
     Indication: RHEUMATOID ARTHRITIS
     Route: 048
     Dates: start: 200707, end: 20130913
  5. LOXOPROFEN [Concomitant]
     Route: 048
     Dates: start: 20130213, end: 20130913
  6. LYRICA [Concomitant]
     Route: 048
     Dates: start: 20130213, end: 20130913
  7. ADOAIR [Concomitant]
     Route: 055
     Dates: end: 20130913
  8. ITOROL [Concomitant]
     Route: 048
     Dates: end: 20130913
  9. WARFARIN [Concomitant]
     Route: 048
     Dates: end: 20130913
  10. MAINTATE [Concomitant]
     Route: 048
     Dates: end: 20130913
  11. EPADEL S [Concomitant]
     Route: 048
     Dates: end: 20130913
  12. LASIX [Concomitant]
     Route: 048
     Dates: end: 20130913
  13. PARIET [Concomitant]
     Route: 048
     Dates: end: 20130913

REACTIONS (1)
  - Interstitial lung disease [Fatal]
